FAERS Safety Report 25221258 (Version 1)
Quarter: 2025Q2

REPORT INFORMATION
  Report Type: Spontaneous
  Country: US (occurrence: US)
  Receive Date: 20250421
  Receipt Date: 20250421
  Transmission Date: 20250716
  Serious: No
  Sender: UCB
  Company Number: US-UCBSA-2024024188

PATIENT
  Sex: Female

DRUGS (2)
  1. NEUPRO [Suspect]
     Active Substance: ROTIGOTINE
     Indication: Product used for unknown indication
     Route: 062
  2. DEVICE\POLYURETHANE [Suspect]
     Active Substance: DEVICE\POLYURETHANE
     Indication: Product used for unknown indication

REACTIONS (2)
  - Irritability [Unknown]
  - Product adhesion issue [Unknown]
